FAERS Safety Report 26060172 (Version 1)
Quarter: 2025Q4

REPORT INFORMATION
  Report Type: Spontaneous
  Country: EU (occurrence: EU)
  Receive Date: 20251118
  Receipt Date: 20251118
  Transmission Date: 20260118
  Serious: Yes (Hospitalization)
  Sender: PFIZER
  Company Number: None

PATIENT
  Age: 39 Year
  Sex: Female

DRUGS (1)
  1. VINCRISTINE SULFATE [Suspect]
     Active Substance: VINCRISTINE SULFATE
     Indication: Acute lymphocytic leukaemia
     Dosage: 2 MG
     Route: 042
     Dates: start: 20230403

REACTIONS (2)
  - Administration site extravasation [Recovered/Resolved]
  - Administration site reaction [Recovered/Resolved]

NARRATIVE: CASE EVENT DATE: 20230404
